FAERS Safety Report 8101603-3 (Version None)
Quarter: 2012Q1

REPORT INFORMATION
  Report Type: 
  Country: None (occurrence: None)
  Receive Date: 20120129
  Receipt Date: 20110919
  Transmission Date: 20120608
  Serious: Yes (Other)
  Sender: FDA-Public Use
  Company Number: US-ABBOTT-11P-163-0855904-00

PATIENT
  Sex: Male
  Weight: 136.2 kg

DRUGS (13)
  1. OXYCODONE HCL [Concomitant]
     Indication: PAIN
  2. IBUPROFEN [Concomitant]
     Indication: PAIN
  3. HUMIRA [Suspect]
     Indication: RHEUMATOID ARTHRITIS
     Dates: start: 20110721, end: 20110818
  4. ALLOPURINOL [Concomitant]
     Indication: BLOOD URIC ACID INCREASED
  5. ASPIRIN [Concomitant]
     Indication: CARDIAC DISORDER
  6. METHOTREXATE [Concomitant]
     Indication: RHEUMATOID ARTHRITIS
  7. CYCLOBENZAPRINE [Concomitant]
     Indication: MUSCLE DISORDER
  8. MULTIPLE VITAMINS [Concomitant]
     Indication: VITAMIN SUPPLEMENTATION
  9. VITAMIN B-12 [Concomitant]
     Indication: VITAMIN SUPPLEMENTATION
  10. LOMOTIL [Concomitant]
     Indication: CROHN'S DISEASE
  11. FOLIC ACID [Concomitant]
     Indication: VITAMIN SUPPLEMENTATION
  12. PANTAPRAZOLE [Concomitant]
     Indication: BOWEL MOVEMENT IRREGULARITY
  13. ATENOLOL [Concomitant]
     Indication: BLOOD PRESSURE

REACTIONS (1)
  - URINARY TRACT INFECTION [None]
